FAERS Safety Report 8211224-X (Version None)
Quarter: 2012Q1

REPORT INFORMATION
  Report Type: 
  Country: None (occurrence: None)
  Receive Date: 20120228
  Receipt Date: 20110114
  Transmission Date: 20120608
  Serious: Yes (Hospitalization)
  Sender: FDA-Public Use
  Company Number: RB-20796-2011

PATIENT
  Age: 28 Year
  Sex: Female

DRUGS (4)
  1. VALIUM [Suspect]
     Indication: ANXIETY
     Dosage: DOSING IS AS NEEDED,
  2. SUBOXONE [Suspect]
     Indication: DRUG DEPENDENCE
     Dosage: 8 MG SUBLINGUAL, 8 MG SUBLINGUAL
     Route: 060
     Dates: start: 20070101, end: 20110101
  3. SUBOXONE [Suspect]
     Indication: DRUG DEPENDENCE
     Dosage: 8 MG SUBLINGUAL, 8 MG SUBLINGUAL
     Route: 060
     Dates: start: 20110101
  4. CELEXA [Concomitant]

REACTIONS (3)
  - DEPRESSION [None]
  - DRUG WITHDRAWAL SYNDROME [None]
  - OVERDOSE [None]
